FAERS Safety Report 9230339 (Version 1)
Quarter: 2013Q2

REPORT INFORMATION
  Report Type: Spontaneous
  Country: US (occurrence: None)
  Receive Date: 20130415
  Receipt Date: 20130415
  Transmission Date: 20140414
  Serious: Yes (Life-Threatening)
  Sender: FDA-Public Use
  Company Number: None

PATIENT
  Age: 71 Year
  Sex: Female
  Weight: 86.18 kg

DRUGS (3)
  1. AVASTIN [Suspect]
  2. NOVOLOG 70/30 [Concomitant]
  3. ALPRAZOLAM [Concomitant]

REACTIONS (3)
  - Parotid gland enlargement [None]
  - Swelling [None]
  - Off label use [None]
